FAERS Safety Report 4445133-9 (Version None)
Quarter: 2004Q3

REPORT INFORMATION
  Report Type: 
  Country: None (occurrence: None)
  Receive Date: 20040907
  Receipt Date: 20040823
  Transmission Date: 20050211
  Serious: Yes (Hospitalization)
  Sender: FDA-Public Use
  Company Number: 03P-163-0218557-02

PATIENT
  Age: 42 Year
  Sex: Male

DRUGS (2)
  1. NORVIR [Suspect]
     Indication: HIV INFECTION
     Dosage: 200 MG, PER ORAL
     Route: 048
  2. TIPRANAVIR [Concomitant]

REACTIONS (4)
  - ANORECTAL DISORDER [None]
  - CONDYLOMA ACUMINATUM [None]
  - DISEASE RECURRENCE [None]
  - LIPOHYPERTROPHY [None]
